FAERS Safety Report 8551979-8 (Version None)
Quarter: 2012Q3

REPORT INFORMATION
  Report Type: 
  Country: None (occurrence: None)
  Receive Date: 20120730
  Receipt Date: 20120725
  Transmission Date: 20120928
  Serious: Yes (Other)
  Sender: FDA-Public Use
  Company Number: US-GILEAD-2012-0056347

PATIENT
  Sex: Male

DRUGS (3)
  1. LETAIRIS [Suspect]
     Indication: PULMONARY HYPERTENSION
     Dosage: 5 MG, UNK
     Route: 048
  2. LETAIRIS [Suspect]
     Indication: LEFT VENTRICULAR DYSFUNCTION
  3. LETAIRIS [Suspect]
     Indication: SICKLE CELL ANAEMIA

REACTIONS (2)
  - SEPTIC SHOCK [None]
  - LIVER FUNCTION TEST ABNORMAL [None]
